FAERS Safety Report 7712813-9 (Version None)
Quarter: 2011Q3

REPORT INFORMATION
  Report Type: 
  Country: None (occurrence: None)
  Receive Date: 20110826
  Receipt Date: 20110816
  Transmission Date: 20111222
  Serious: Yes (Congenital Anomaly)
  Sender: FDA-Public Use
  Company Number: DE-GLAXOSMITHKLINE-D0072397A

PATIENT
  Sex: Male
  Weight: 2.6 kg

DRUGS (6)
  1. ALVESCO [Suspect]
     Indication: ASTHMA
     Dosage: 160MCG TWICE PER DAY
     Route: 064
     Dates: start: 20091117, end: 20100104
  2. FOLIC ACID [Concomitant]
     Indication: PROPHYLAXIS OF NEURAL TUBE DEFECT
     Dosage: .4MG PER DAY
     Route: 064
     Dates: start: 20091216, end: 20100808
  3. ALBUTEROL [Suspect]
     Indication: ASTHMA
     Route: 064
     Dates: start: 20091117, end: 20100808
  4. JUNIK AUTOHALER [Suspect]
     Indication: ASTHMA
     Dosage: 200MCG TWICE PER DAY
     Route: 064
     Dates: start: 20100105, end: 20100808
  5. AMOXICILLIN [Concomitant]
     Indication: PNEUMONIA
     Dosage: 1000MG TWICE PER DAY
     Route: 064
     Dates: start: 20100126, end: 20100215
  6. BERODUAL [Suspect]
     Indication: ASTHMA
     Route: 064

REACTIONS (3)
  - POLYDACTYLY [None]
  - PULMONARY SEQUESTRATION [None]
  - MATERNAL DRUGS AFFECTING FOETUS [None]
